FAERS Safety Report 9924824 (Version 1)
Quarter: 2014Q1

REPORT INFORMATION
  Report Type: Spontaneous
  Country: US (occurrence: None)
  Receive Date: 20140224
  Receipt Date: 20140224
  Transmission Date: 20141002
  Serious: Yes (Hospitalization)
  Sender: FDA-Public Use
  Company Number: None

PATIENT
  Age: 74 Year
  Sex: Female
  Weight: 65.77 kg

DRUGS (1)
  1. ARICEPT 10 MG [Suspect]
     Dosage: 5MG 1ST 4 WKS INCREASE TO 10MG, ONCE DAILY
     Route: 048
     Dates: start: 20131202, end: 20140205

REACTIONS (4)
  - Dyspnoea [None]
  - Palpitations [None]
  - Respiratory disorder [None]
  - Cardiac disorder [None]
